FAERS Safety Report 9336932 (Version 5)
Quarter: 2017Q1

REPORT INFORMATION
  Report Type: Spontaneous
  Country: US (occurrence: US)
  Receive Date: 20130607
  Receipt Date: 20170307
  Transmission Date: 20170429
  Serious: Yes (Death, Hospitalization, Other)
  Sender: FDA-Public Use
  Company Number: US-009507513-1305USA017837

PATIENT
  Sex: Female
  Weight: 60.77 kg

DRUGS (8)
  1. VITAMINS (UNSPECIFIED) [Concomitant]
     Active Substance: VITAMINS
     Indication: PRODUCT USED FOR UNKNOWN INDICATION
     Dosage: UNK, QD
     Route: 065
     Dates: end: 2014
  2. FOSAMAX [Suspect]
     Active Substance: ALENDRONATE SODIUM
     Indication: OSTEOPOROSIS
     Dosage: 10 MG, QD
     Route: 048
     Dates: start: 200005, end: 200909
  3. FOSAMAX [Suspect]
     Active Substance: ALENDRONATE SODIUM
     Dosage: 70 MG, QW
     Route: 048
     Dates: start: 200005, end: 200909
  4. CALCIUM (UNSPECIFIED) [Concomitant]
     Active Substance: CALCIUM
     Indication: PRODUCT USED FOR UNKNOWN INDICATION
     Dosage: 500 MG, QD
     Route: 065
     Dates: end: 2014
  5. VITAMIN D [Concomitant]
     Active Substance: CHOLECALCIFEROL
     Indication: PRODUCT USED FOR UNKNOWN INDICATION
     Dosage: 200 IU, QD
     Route: 065
     Dates: end: 2014
  6. PREMARIN [Concomitant]
     Active Substance: ESTROGENS, CONJUGATED
     Indication: PRODUCT USED FOR UNKNOWN INDICATION
     Dosage: UNK, UNKNOWN
     Route: 065
     Dates: start: 1997, end: 2001
  7. DIAZEPAM. [Concomitant]
     Active Substance: DIAZEPAM
     Indication: PRODUCT USED FOR UNKNOWN INDICATION
     Dosage: UNK, UNKNOWN
     Route: 065
     Dates: start: 2000, end: 2006
  8. ZOLOFT [Concomitant]
     Active Substance: SERTRALINE HYDROCHLORIDE
     Indication: PRODUCT USED FOR UNKNOWN INDICATION
     Dosage: UNK, UNKNOWN
     Route: 065
     Dates: start: 2000, end: 2014

REACTIONS (32)
  - Osteopenia [Unknown]
  - Arrhythmia [Unknown]
  - Osteoarthritis [Unknown]
  - Cerebral haemorrhage [Fatal]
  - Asthma [Not Recovered/Not Resolved]
  - Oral surgery [Unknown]
  - Dry skin [Unknown]
  - Type 2 diabetes mellitus [Unknown]
  - Cataract [Unknown]
  - Urinary tract disorder [Unknown]
  - Increased tendency to bruise [Unknown]
  - Dizziness [Unknown]
  - Headache [Unknown]
  - Blood urine present [Unknown]
  - Depression [Unknown]
  - Blood cholesterol increased [Not Recovered/Not Resolved]
  - Fall [Unknown]
  - Chronic obstructive pulmonary disease [Unknown]
  - Gastritis [Unknown]
  - Bursitis [Unknown]
  - Osteoarthritis [Unknown]
  - Fall [Unknown]
  - Arthralgia [Unknown]
  - Ankle fracture [Recovered/Resolved]
  - Chills [Unknown]
  - Cough [Unknown]
  - Asthenia [Unknown]
  - Pruritus [Unknown]
  - Tendonitis [Unknown]
  - Femur fracture [Unknown]
  - Hypoacusis [Unknown]
  - Abdominal pain [Unknown]

NARRATIVE: CASE EVENT DATE: 2000
